FAERS Safety Report 7553494-7 (Version None)
Quarter: 2011Q2

REPORT INFORMATION
  Report Type: 
  Country: None (occurrence: None)
  Receive Date: 20110617
  Receipt Date: 20110202
  Transmission Date: 20111010
  Serious: Yes (Other)
  Sender: FDA-Public Use
  Company Number: US-BAYER-201041074NA

PATIENT
  Age: 21 Year
  Sex: Female
  Weight: 86 kg

DRUGS (6)
  1. CIPROFLOXACIN HCL [Concomitant]
     Dosage: 1000 MG (DAILY DOSE), BID,
  2. EFFEXOR [Concomitant]
     Indication: DEPRESSION
  3. YASMIN [Suspect]
     Indication: PREMENSTRUAL SYNDROME
  4. YASMIN [Suspect]
     Indication: CONTRACEPTION
     Dosage: UNK UNK, QD
     Route: 048
     Dates: start: 20050201, end: 20080501
  5. DIFLUCAN [Concomitant]
  6. YASMIN [Suspect]
     Indication: MENSTRUATION IRREGULAR

REACTIONS (7)
  - NAUSEA [None]
  - VOMITING [None]
  - DIARRHOEA [None]
  - CHOLECYSTITIS CHRONIC [None]
  - ABDOMINAL PAIN UPPER [None]
  - INFLUENZA [None]
  - NEPHROLITHIASIS [None]
